FAERS Safety Report 7961406-7 (Version None)
Quarter: 2011Q4

REPORT INFORMATION
  Report Type: 
  Country: None (occurrence: None)
  Receive Date: 20111202
  Receipt Date: 20111118
  Transmission Date: 20120403
  Serious: Yes (Life-Threatening, Hospitalization, Other)
  Sender: FDA-Public Use
  Company Number: TCI2011A05793

PATIENT
  Age: 67 Year
  Sex: Male

DRUGS (3)
  1. ACTOS [Suspect]
     Indication: TYPE 2 DIABETES MELLITUS
     Dosage: 15;30 MG (15;30 MG, 1 IN 1 D), PER ORAL
     Route: 048
     Dates: start: 20060811, end: 20080330
  2. ACTOS [Suspect]
     Indication: TYPE 2 DIABETES MELLITUS
     Dosage: 15;30 MG (15;30 MG, 1 IN 1 D), PER ORAL
     Route: 048
     Dates: start: 20080331, end: 20110729
  3. AMARYL [Concomitant]

REACTIONS (1)
  - BLADDER TRANSITIONAL CELL CARCINOMA [None]
